FAERS Safety Report 11884404 (Version 1)
Quarter: 2016Q1

REPORT INFORMATION
  Report Type: Spontaneous
  Country: US (occurrence: US)
  Receive Date: 20160103
  Receipt Date: 20160103
  Transmission Date: 20160526
  Serious: No
  Sender: FDA-Public Use
  Company Number: US-BIOGEN-2013BI086256

PATIENT
  Age: 36 Year
  Sex: Male

DRUGS (2)
  1. AVONEX [Suspect]
     Active Substance: INTERFERON BETA-1A
     Indication: PRODUCT USED FOR UNKNOWN INDICATION
     Route: 030
  2. AVONEX [Suspect]
     Active Substance: INTERFERON BETA-1A
     Route: 030
     Dates: start: 20040928, end: 20110426

REACTIONS (9)
  - Dizziness [Recovered/Resolved]
  - Fear of falling [Recovered/Resolved]
  - Influenza like illness [Recovered/Resolved]
  - Feeling abnormal [Recovered/Resolved]
  - Drug ineffective [Recovered/Resolved]
  - Abasia [Recovered/Resolved]
  - Headache [Not Recovered/Not Resolved]
  - Fatigue [Unknown]
  - Gait disturbance [Not Recovered/Not Resolved]

NARRATIVE: CASE EVENT DATE: 200409
